FAERS Safety Report 19304493 (Version 2)
Quarter: 2021Q2

REPORT INFORMATION
  Report Type: Report from Study
  Country: US (occurrence: US)
  Receive Date: 20210525
  Receipt Date: 20210608
  Transmission Date: 20210717
  Serious: Yes (Hospitalization)
  Sender: FDA-Public Use
  Company Number: US-EXELIXIS-CABO-21040666

PATIENT
  Sex: Female
  Weight: 47 kg

DRUGS (25)
  1. LOVENOX [Concomitant]
     Active Substance: ENOXAPARIN SODIUM
     Indication: DEEP VEIN THROMBOSIS
  2. CLOBETASOL [Concomitant]
     Active Substance: CLOBETASOL
  3. DIFFERIN [Concomitant]
     Active Substance: ADAPALENE
  4. EMLA [Concomitant]
     Active Substance: LIDOCAINE\PRILOCAINE
     Indication: PAIN
  5. SYNTHROID [Concomitant]
     Active Substance: LEVOTHYROXINE SODIUM
     Indication: HYPOTHYROIDISM
  6. DILAUDID [Concomitant]
     Active Substance: HYDROMORPHONE HYDROCHLORIDE
  7. PHENERGAN [Concomitant]
     Active Substance: PROMETHAZINE HYDROCHLORIDE
     Indication: VOMITING
  8. KONSYL [Concomitant]
     Active Substance: PSYLLIUM HUSK
  9. PHENERGAN [Concomitant]
     Active Substance: PROMETHAZINE HYDROCHLORIDE
     Indication: NAUSEA
  10. KENALOG [Concomitant]
     Active Substance: TRIAMCINOLONE ACETONIDE
     Indication: PROPHYLAXIS
  11. LASIX [Concomitant]
     Active Substance: FUROSEMIDE
     Indication: OEDEMA
  12. NIACINAMIDE [Concomitant]
     Active Substance: NIACINAMIDE
  13. CORTIZONE 10 [Concomitant]
     Active Substance: HYDROCORTISONE
  14. PRILOSEC [Concomitant]
     Active Substance: OMEPRAZOLE MAGNESIUM
  15. ZYPREXA [Concomitant]
     Active Substance: OLANZAPINE
     Indication: NAUSEA
  16. ZOFRAN [Concomitant]
     Active Substance: ONDANSETRON HYDROCHLORIDE
     Indication: VOMITING
  17. EMER [Concomitant]
  18. REMERON [Concomitant]
     Active Substance: MIRTAZAPINE
  19. NIZORAL [Concomitant]
     Active Substance: KETOCONAZOLE
  20. LASIX [Concomitant]
     Active Substance: FUROSEMIDE
     Indication: HYPERTENSION
  21. MICRO?K [Concomitant]
     Active Substance: POTASSIUM CHLORIDE
  22. CABOMETYX [Suspect]
     Active Substance: CABOZANTINIB S-MALATE
     Indication: RENAL CELL CARCINOMA
     Dosage: 60 MG, QD
     Route: 048
     Dates: start: 20210511, end: 20210525
  23. COREG [Concomitant]
     Active Substance: CARVEDILOL
     Indication: HYPERTENSION
  24. EPICERAM [Concomitant]
     Active Substance: DEVICE
  25. ZOFRAN [Concomitant]
     Active Substance: ONDANSETRON HYDROCHLORIDE
     Indication: NAUSEA

REACTIONS (2)
  - Tumour associated fever [Unknown]
  - Malignant neoplasm progression [Unknown]
